FAERS Safety Report 21519075 (Version 2)
Quarter: 2022Q4

REPORT INFORMATION
  Report Type: Report from Study
  Country: US (occurrence: US)
  Receive Date: 20221028
  Receipt Date: 20221207
  Transmission Date: 20230113
  Serious: Yes (Hospitalization, Other)
  Sender: FDA-Public Use
  Company Number: US-BRISTOL-MYERS SQUIBB COMPANY-2022-127461

PATIENT
  Age: 74 Year
  Sex: Male
  Weight: 44.91 kg

DRUGS (2)
  1. LENALIDOMIDE [Suspect]
     Active Substance: LENALIDOMIDE
     Indication: Plasma cell myeloma
     Dosage: FREQUENCY : 21
     Route: 065
     Dates: start: 20220610
  2. LENALIDOMIDE [Suspect]
     Active Substance: LENALIDOMIDE
     Dosage: DOSE : 10MG; FREQ : 1 DAILY 21 DAYS ON 7 DAYS OFF
     Route: 048
     Dates: start: 20221006

REACTIONS (5)
  - Oxygen saturation decreased [Unknown]
  - Renal impairment [Unknown]
  - COVID-19 [Unknown]
  - Renal failure [Unknown]
  - Platelet count decreased [Recovering/Resolving]

NARRATIVE: CASE EVENT DATE: 20221001
